FAERS Safety Report 10033345 (Version 2)
Quarter: 2014Q2

REPORT INFORMATION
  Report Type: Spontaneous
  Country: BE (occurrence: BE)
  Receive Date: 20140325
  Receipt Date: 20140401
  Transmission Date: 20141212
  Serious: Yes (Hospitalization, Other)
  Sender: FDA-Public Use
  Company Number: BE-ROCHE-1364254

PATIENT
  Age: 22 Year
  Sex: Female

DRUGS (5)
  1. MYCOPHENOLATE MOFETIL [Suspect]
     Indication: LUPUS NEPHRITIS
     Route: 065
     Dates: start: 201203
  2. RITUXIMAB [Suspect]
     Indication: PERITONITIS LUPUS
     Route: 042
     Dates: start: 201205, end: 201303
  3. BELIMUMAB [Suspect]
     Indication: PERITONITIS LUPUS
     Route: 065
     Dates: start: 201305
  4. HYDROXYCHLOROQUINE [Concomitant]
     Indication: SYSTEMIC LUPUS ERYTHEMATOSUS
     Route: 065
     Dates: start: 201006
  5. PREDNISOLON [Concomitant]
     Indication: SYSTEMIC LUPUS ERYTHEMATOSUS
     Route: 065
     Dates: start: 201006

REACTIONS (9)
  - Pleuropericarditis [Unknown]
  - Oesophagitis [Unknown]
  - Ascites [Unknown]
  - Off label use [Unknown]
  - Peritonitis [Unknown]
  - Chest pain [Unknown]
  - Proteinuria [Unknown]
  - Influenza [Unknown]
  - Lupus nephritis [Unknown]
